FAERS Safety Report 15393158 (Version 1)
Quarter: 2018Q3

REPORT INFORMATION
  Report Type: Spontaneous
  Country: US (occurrence: US)
  Receive Date: 20180917
  Receipt Date: 20180917
  Transmission Date: 20181010
  Serious: Yes (Other)
  Sender: FDA-Public Use
  Company Number: US-TAKEDA-2018TUS027178

PATIENT
  Age: 71 Year
  Sex: Male

DRUGS (1)
  1. PONATINIB [Suspect]
     Active Substance: PONATINIB
     Indication: ACUTE MYELOID LEUKAEMIA
     Dosage: 15 MG, QD
     Route: 065

REACTIONS (5)
  - Leukocytosis [Unknown]
  - Blood lactate dehydrogenase increased [Unknown]
  - Leukaemia recurrent [Unknown]
  - Thrombocytopenia [Unknown]
  - Off label use [Unknown]
